FAERS Safety Report 22879475 (Version 2)
Quarter: 2023Q4

REPORT INFORMATION
  Report Type: Spontaneous
  Country: IT (occurrence: IT)
  Receive Date: 20230829
  Receipt Date: 20231012
  Transmission Date: 20240110
  Serious: Yes (Hospitalization, Other)
  Sender: FDA-Public Use
  Company Number: None

PATIENT
  Age: 49 Year
  Sex: Female

DRUGS (3)
  1. PIQRAY [Suspect]
     Active Substance: ALPELISIB
     Indication: Breast cancer recurrent
     Dosage: 300 MG, Q24H (2 COMPRESSE DA 150MG AL GIORNO IN UN^UNICA SOMMINISTRAZIONE)
     Route: 048
     Dates: start: 20230603, end: 20230608
  2. AMLODIPINE [Concomitant]
     Active Substance: AMLODIPINE BESYLATE
     Indication: Product used for unknown indication
     Dosage: 5 MG, Q24H (OLTRE ALL^AMLODIPINA, NELLA TERAPIA DOMICILIARE DELLA PAZIENTE VIENE ANCHE RIPORTATO UNO
     Route: 048
  3. MS CONTIN [Concomitant]
     Active Substance: MORPHINE SULFATE
     Indication: Product used for unknown indication
     Dosage: 10 MG, Q12H
     Route: 048

REACTIONS (2)
  - Impaired fasting glucose [Recovered/Resolved with Sequelae]
  - Diabetes mellitus [Not Recovered/Not Resolved]

NARRATIVE: CASE EVENT DATE: 20230607
